FAERS Safety Report 5125451-1 (Version None)
Quarter: 2006Q3

REPORT INFORMATION
  Report Type: 
  Country: None (occurrence: None)
  Receive Date: 20060822
  Receipt Date: 20060724
  Transmission Date: 20061208
  Serious: No
  Sender: FDA-Public Use
  Company Number: PHEH2006US09444

PATIENT
  Sex: Male

DRUGS (1)
  1. ENABLEX [Suspect]
     Indication: MICTURITION URGENCY
     Dosage: 7.5 MG, QD
     Dates: start: 20060717

REACTIONS (1)
  - CONSTIPATION [None]
